FAERS Safety Report 7176503-6 (Version None)
Quarter: 2010Q4

REPORT INFORMATION
  Report Type: 
  Country: None (occurrence: None)
  Receive Date: 20101220
  Receipt Date: 20101217
  Transmission Date: 20110411
  Serious: Yes (Other)
  Sender: FDA-Public Use
  Company Number: CN-PFIZER INC-2010168702

PATIENT
  Age: 61 Year
  Sex: Male

DRUGS (1)
  1. SULPERAZON [Suspect]

REACTIONS (3)
  - ASPHYXIA [None]
  - CYANOSIS [None]
  - HYPERSENSITIVITY [None]
